FAERS Safety Report 7890083-9 (Version None)
Quarter: 2011Q4

REPORT INFORMATION
  Report Type: 
  Country: None (occurrence: None)
  Receive Date: 20111103
  Receipt Date: 20111021
  Transmission Date: 20120403
  Serious: Yes (Other)
  Sender: FDA-Public Use
  Company Number: CA-ROCHE-1008048

PATIENT
  Sex: Female

DRUGS (11)
  1. XOLAIR [Suspect]
     Indication: ASTHMA
     Route: 058
     Dates: start: 20100601
  2. SINGULAIR [Concomitant]
  3. CORTISONE ACETATE [Concomitant]
  4. XOLAIR [Suspect]
     Route: 058
     Dates: start: 20110718
  5. PREDNISONE [Concomitant]
     Dates: start: 20110601
  6. ANTIBIOTICS NOS [Concomitant]
     Dates: start: 20110823
  7. PREDNISONE [Concomitant]
     Route: 048
     Dates: start: 20110826, end: 20110829
  8. PREDNISONE [Concomitant]
     Dates: start: 20110822, end: 20110825
  9. ALVESCO [Concomitant]
  10. ADVAIR DISKUS 100/50 [Concomitant]
     Dosage: 500/50
  11. VENTOLIN [Concomitant]

REACTIONS (10)
  - OEDEMA PERIPHERAL [None]
  - ASTHMA [None]
  - TOOTH ABSCESS [None]
  - SLEEP DISORDER [None]
  - HOT FLUSH [None]
  - MALAISE [None]
  - PRODUCTIVE COUGH [None]
  - LUNG INFECTION [None]
  - FATIGUE [None]
  - UPPER RESPIRATORY TRACT INFECTION [None]
